FAERS Safety Report 17850933 (Version 1)
Quarter: 2020Q2

REPORT INFORMATION
  Report Type: Spontaneous
  Country: US (occurrence: US)
  Receive Date: 20200602
  Receipt Date: 20200602
  Transmission Date: 20200714
  Serious: Yes (Death, Life-Threatening, Hospitalization)
  Sender: FDA-Public Use
  Company Number: None

PATIENT
  Age: 68 Year
  Sex: Female
  Weight: 83.8 kg

DRUGS (16)
  1. PRIMIDONE. [Concomitant]
     Active Substance: PRIMIDONE
     Dates: start: 20200513, end: 20200525
  2. KETOROLAC [Concomitant]
     Active Substance: KETOROLAC TROMETHAMINE
     Dates: start: 20200522, end: 20200523
  3. MEMANTINE. [Concomitant]
     Active Substance: MEMANTINE
     Dates: start: 20200513, end: 20200525
  4. PERCOCET [Concomitant]
     Active Substance: ACETAMINOPHEN\OXYCODONE HYDROCHLORIDE
     Dates: start: 20200521, end: 20200524
  5. PYRIDOXINE [Concomitant]
     Active Substance: PYRIDOXINE
     Dates: start: 20200514, end: 20200514
  6. VITAMIN D [Concomitant]
     Active Substance: VITAMIN D NOS
     Dates: start: 20200514, end: 20200514
  7. EMERGENCY USE REMDESIVIR [Suspect]
     Active Substance: REMDESIVIR
     Indication: COVID-19
     Dosage: ?          OTHER FREQUENCY:X1 LOADING DOSE;?
     Route: 042
     Dates: start: 20200514, end: 20200514
  8. HYDRALAZINE [Concomitant]
     Active Substance: HYDRALAZINE HYDROCHLORIDE
     Dates: start: 20200513, end: 20200523
  9. NOVOLOG [Concomitant]
     Active Substance: INSULIN ASPART
     Dates: start: 20200513, end: 20200524
  10. POTASSIUM CHLORIDE. [Concomitant]
     Active Substance: POTASSIUM CHLORIDE
     Dates: start: 20200520, end: 20200520
  11. LEVEMIR [Concomitant]
     Active Substance: INSULIN DETEMIR
     Dates: start: 20200513, end: 20200525
  12. EMERGENCY USE REMDESIVIR [Suspect]
     Active Substance: REMDESIVIR
     Indication: COVID-19
     Route: 042
     Dates: start: 20200522, end: 20200525
  13. IMDUR [Concomitant]
     Active Substance: ISOSORBIDE MONONITRATE
     Dates: start: 20200514, end: 20200523
  14. VANCOMYCIN [Concomitant]
     Active Substance: VANCOMYCIN
     Dates: start: 20200523, end: 20200524
  15. LINEZOLID. [Concomitant]
     Active Substance: LINEZOLID
     Dates: start: 20200513, end: 20200513
  16. POTASSIUM PHOSPHATE SODIUM PHOSPHATE [Concomitant]
     Dates: start: 20200520, end: 20200524

REACTIONS (3)
  - Respiratory distress [None]
  - General physical health deterioration [None]
  - Pyrexia [None]

NARRATIVE: CASE EVENT DATE: 20200526
